FAERS Safety Report 7397688-2 (Version None)
Quarter: 2011Q2

REPORT INFORMATION
  Report Type: 
  Country: None (occurrence: None)
  Receive Date: 20110406
  Receipt Date: 20110330
  Transmission Date: 20111010
  Serious: Yes (Other)
  Sender: FDA-Public Use
  Company Number: US-PFIZER INC-US-WYE-H16079210

PATIENT
  Sex: Female
  Weight: 81.7 kg

DRUGS (4)
  1. XANAX [Concomitant]
     Dosage: 0.25 MG, 4X/DAY
  2. ZOLOFT [Suspect]
     Indication: DEPRESSION
     Dosage: 100 MG, DAILY
     Dates: start: 20100101, end: 20100101
  3. WELLBUTRIN [Concomitant]
     Dosage: UNK
  4. PRISTIQ [Suspect]
     Indication: DEPRESSION
     Dosage: 50 MG, 1X/DAY
     Dates: start: 20100616

REACTIONS (7)
  - CRYING [None]
  - TREMOR [None]
  - BIPOLAR I DISORDER [None]
  - RESTLESSNESS [None]
  - EYE PAIN [None]
  - CONDITION AGGRAVATED [None]
  - EXPIRED DRUG ADMINISTERED [None]
